FAERS Safety Report 13637696 (Version 2)
Quarter: 2019Q1

REPORT INFORMATION
  Report Type: Spontaneous
  Country: US (occurrence: US)
  Receive Date: 20170609
  Receipt Date: 20190320
  Transmission Date: 20190417
  Serious: No
  Sender: FDA-Public Use
  Company Number: US-ASTELLAS-2017US018363

PATIENT
  Age: 50 Year
  Sex: Female

DRUGS (1)
  1. CRESEMBA [Suspect]
     Active Substance: ISAVUCONAZONIUM SULFATE
     Indication: MUCORMYCOSIS
     Dosage: UNK, UNKNOWN FREQ.
     Route: 065
     Dates: start: 20170424, end: 20170501

REACTIONS (2)
  - Tremor [Recovered/Resolved]
  - Muscle contractions involuntary [Unknown]

NARRATIVE: CASE EVENT DATE: 20170428
